FAERS Safety Report 18027763 (Version 2)
Quarter: 2020Q3

REPORT INFORMATION
  Report Type: Spontaneous
  Country: DE (occurrence: DE)
  Receive Date: 20200715
  Receipt Date: 20200722
  Transmission Date: 20201103
  Serious: Yes (Hospitalization)
  Sender: FDA-Public Use
  Company Number: NVSC2020DE191238

PATIENT
  Age: 43 Year
  Sex: Male
  Weight: 80 kg

DRUGS (1)
  1. DICLOFENAC [Suspect]
     Active Substance: DICLOFENAC
     Indication: PRODUCT USED FOR UNKNOWN INDICATION
     Dosage: UNK
     Route: 048

REACTIONS (10)
  - Dyspnoea [Unknown]
  - Hyperhidrosis [Unknown]
  - Productive cough [Unknown]
  - Fatigue [Unknown]
  - Arthralgia [Unknown]
  - Night sweats [Unknown]
  - Cough [Unknown]
  - Weight decreased [Unknown]
  - Back pain [Unknown]
  - Decreased appetite [Unknown]
